FAERS Safety Report 12394316 (Version 1)
Quarter: 2016Q2

REPORT INFORMATION
  Report Type: Spontaneous
  Country: DE (occurrence: DE)
  Receive Date: 20160523
  Receipt Date: 20160523
  Transmission Date: 20160815
  Serious: Yes (Hospitalization, Other)
  Sender: FDA-Public Use
  Company Number: DE-TEVA-231683ISR

PATIENT
  Age: 56 Year
  Sex: Female
  Weight: 67 kg

DRUGS (4)
  1. FLUPIRTINE [Suspect]
     Active Substance: FLUPIRTINE
     Dosage: 1 DOSAGE FORMS DAILY;
     Dates: start: 20090629, end: 20090704
  2. TRAMADOL. [Suspect]
     Active Substance: TRAMADOL
     Dosage: .5 DOSAGE FORMS DAILY;
     Dates: start: 20090629, end: 20090704
  3. TRAMADOL. [Suspect]
     Active Substance: TRAMADOL
     Indication: INTERVERTEBRAL DISC PROTRUSION
     Dosage: 2 DOSAGE FORMS DAILY;
     Dates: start: 20090525, end: 20090529
  4. FLUPIRTINE [Suspect]
     Active Substance: FLUPIRTINE
     Dosage: 1 DOSAGE FORMS DAILY; KATADOLON S
     Dates: start: 20090525, end: 20090529

REACTIONS (2)
  - Hepatotoxicity [Not Recovered/Not Resolved]
  - Drug-induced liver injury [Recovered/Resolved]

NARRATIVE: CASE EVENT DATE: 20100128
